FAERS Safety Report 20608331 (Version 1)
Quarter: 2022Q1

REPORT INFORMATION
  Report Type: Spontaneous
  Country: US (occurrence: None)
  Receive Date: 20220317
  Receipt Date: 20220317
  Transmission Date: 20220423
  Serious: No
  Sender: FDA-Public Use
  Company Number: None

PATIENT
  Sex: Male
  Weight: 86.64 kg

DRUGS (1)
  1. SANCUSO [Suspect]
     Active Substance: GRANISETRON
     Indication: Oesophageal carcinoma
     Dosage: OTHER FREQUENCY : 24-48 HR B/F CH;?
     Route: 062

REACTIONS (1)
  - Drug ineffective [None]
